FAERS Safety Report 9483718 (Version 1)
Quarter: 2013Q3

REPORT INFORMATION
  Report Type: Spontaneous
  Country: US (occurrence: US)
  Receive Date: 20130828
  Receipt Date: 20130828
  Transmission Date: 20140515
  Serious: Yes (Hospitalization)
  Sender: FDA-Public Use
  Company Number: US-B.I. PHARMACEUTICALS,INC./RIDGEFIELD-2013-BI-26248BP

PATIENT
  Age: 12 Year
  Sex: Male
  Weight: 69.8 kg

DRUGS (12)
  1. CATAPRES [Suspect]
     Indication: AFFECTIVE DISORDER
     Dosage: 0.2 MG
     Route: 048
     Dates: start: 20120301
  2. MENINGOCOCCAL VACCINE [Suspect]
     Indication: PROPHYLAXIS
     Dates: start: 20130409, end: 20130409
  3. DESYREL (TRAZODONE HYDROCHLORIDE) [Suspect]
     Indication: AFFECTIVE DISORDER
     Dosage: 25 MG
     Route: 048
     Dates: start: 20130108, end: 20130617
  4. DESYREL (TRAZODONE HYDROCHLORIDE) [Suspect]
     Dosage: 12.5 MG
     Route: 048
     Dates: start: 20130617
  5. DEPAKOTE (VALPROATE SEMISODIUM) [Suspect]
     Indication: AFFECTIVE DISORDER
     Dosage: 300 MG
     Route: 048
     Dates: start: 20120301
  6. DEPAKOTE (VALPROATE SEMISODIUM) [Suspect]
     Dosage: 500 MG
     Route: 048
     Dates: start: 20130617
  7. DEPAKOTE (VALPROATE SEMISODIUM) [Suspect]
     Dosage: 250 MG
     Route: 048
     Dates: start: 20130621
  8. VYVANSE (LISDEXAMFETAMINE DIMESYLATE) [Suspect]
     Indication: AFFECTIVE DISORDER
     Dosage: 40 MG
     Route: 048
     Dates: start: 20130321
  9. VYVANSE (LISDEXAMFETAMINE DIMESYLATE) [Suspect]
     Dosage: 20 MG
     Route: 048
     Dates: start: 20130402
  10. PROZAC (FLUOXETINE HYDROCHLORIDE) [Suspect]
     Indication: AFFECTIVE DISORDER
     Dosage: 10 MG
     Route: 048
     Dates: start: 20121108
  11. THORAZINE [Suspect]
     Indication: MOOD DISORDER DUE TO A GENERAL MEDICAL CONDITION
     Dosage: 20 MG
     Route: 048
     Dates: start: 20130326
  12. THORAZINE [Suspect]
     Dosage: 25 MG
     Route: 048
     Dates: start: 20130617

REACTIONS (3)
  - Treatment noncompliance [Not Recovered/Not Resolved]
  - Affective disorder [Recovered/Resolved]
  - Aggression [Unknown]
